FAERS Safety Report 9825866 (Version 2)
Quarter: 2014Q1

REPORT INFORMATION
  Report Type: Spontaneous
  Country: US (occurrence: None)
  Receive Date: 20140115
  Receipt Date: 20140123
  Transmission Date: 20141002
  Serious: Yes (Hospitalization)
  Sender: FDA-Public Use
  Company Number: 13AE032

PATIENT
  Age: 76 Year
  Sex: Male
  Weight: 79.83 kg

DRUGS (20)
  1. ACETAMINOPHEN [Suspect]
     Indication: MONARTHRITIS
     Route: 048
     Dates: start: 20131220, end: 20131228
  2. ACETAMINOPHEN [Suspect]
     Indication: ARTHRITIS
     Route: 048
     Dates: start: 20131220, end: 20131228
  3. ZINC [Concomitant]
  4. VITAMIN (E-D-3, C) [Concomitant]
  5. VENTOLIN [Concomitant]
  6. TYLENOL [Concomitant]
  7. SYNTHROID [Concomitant]
  8. SYMBICOR [Concomitant]
  9. SAW PALMETTO [Concomitant]
  10. PRENATAL MULTIVITAMIN [Concomitant]
  11. OXYGEN [Concomitant]
  12. OMEPRAZOLE [Concomitant]
  13. OMEGA 3 [Concomitant]
  14. LEVABUTEROL [Concomitant]
  15. IPRATROPIUM-ALBUTEROL [Concomitant]
  16. IBUPROFEN [Concomitant]
  17. FORMOTEROL [Concomitant]
  18. FISH OIL [Concomitant]
  19. COMBIVENT [Concomitant]
  20. BUDESONIDE [Concomitant]

REACTIONS (4)
  - Rash [None]
  - Rash [None]
  - Hypersensitivity [None]
  - Ulcer haemorrhage [None]
